FAERS Safety Report 6028518-9 (Version None)
Quarter: 2008Q4

REPORT INFORMATION
  Report Type: 
  Country: None (occurrence: None)
  Receive Date: 20081222
  Receipt Date: 20081024
  Transmission Date: 20090506
  Serious: No
  Sender: FDA-Public Use
  Company Number: US-WYE-H06552208

PATIENT
  Age: 52 Year
  Sex: Male

DRUGS (2)
  1. PRISTIQ [Suspect]
     Indication: MAJOR DEPRESSION
     Dosage: 50 MG 1X PER 1 DAY, ORAL
     Route: 048
  2. LORAZEPAM [Suspect]
     Dosage: 1 MG 2X PER 1 DAY, ORAL
     Route: 048

REACTIONS (4)
  - ANXIETY [None]
  - DRUG WITHDRAWAL SYNDROME [None]
  - HYPOAESTHESIA [None]
  - TREMOR [None]
